FAERS Safety Report 6126034-7 (Version None)
Quarter: 2009Q1

REPORT INFORMATION
  Report Type: 
  Country: None (occurrence: None)
  Receive Date: 20090320
  Receipt Date: 20090316
  Transmission Date: 20090719
  Serious: No
  Sender: FDA-Public Use
  Company Number: US-JNJFOC-20090304316

PATIENT
  Sex: Female
  Weight: 114.31 kg

DRUGS (8)
  1. DURAGESIC-100 [Suspect]
     Indication: FIBROMYALGIA
     Route: 062
  2. DURAGESIC-100 [Suspect]
     Indication: SCIATICA
     Route: 062
  3. FLEXERIL [Interacting]
     Indication: MUSCLE SPASMS
     Route: 048
  4. HYDROCODONE [Concomitant]
     Indication: BREAKTHROUGH PAIN
     Dosage: 10/500 MG TABLET
     Route: 048
  5. LYRICA [Concomitant]
     Indication: FIBROMYALGIA
     Route: 048
  6. NEXIUM [Concomitant]
     Indication: GASTROOESOPHAGEAL REFLUX DISEASE
     Route: 048
  7. IBUPROFEN [Concomitant]
     Indication: INFLAMMATION
     Route: 048
  8. LAMICTAL [Concomitant]
     Indication: DEPRESSION
     Route: 048

REACTIONS (3)
  - DRUG ADMINISTERED AT INAPPROPRIATE SITE [None]
  - DRUG INTERACTION [None]
  - WRONG TECHNIQUE IN DRUG USAGE PROCESS [None]
